FAERS Safety Report 23560455 (Version 1)
Quarter: 2024Q1

REPORT INFORMATION
  Report Type: Spontaneous
  Country: PL (occurrence: None)
  Receive Date: 20240223
  Receipt Date: 20240223
  Transmission Date: 20240410
  Serious: Yes (Other)
  Sender: FDA-Public Use
  Company Number: 2024A042810

PATIENT
  Age: 69 Year
  Sex: Female

DRUGS (3)
  1. OLAPARIB [Suspect]
     Active Substance: OLAPARIB
     Dosage: 600.0MG UNKNOWN
     Route: 048
  2. OLAPARIB [Suspect]
     Active Substance: OLAPARIB
     Dosage: 500.0MG UNKNOWN
     Route: 048
  3. OLAPARIB [Suspect]
     Active Substance: OLAPARIB
     Dosage: 400.0MG UNKNOWN
     Route: 048

REACTIONS (2)
  - Bone marrow failure [Unknown]
  - Biopsy bone marrow normal [Unknown]
